FAERS Safety Report 9701755 (Version 1)
Quarter: 2013Q4

REPORT INFORMATION
  Report Type: Spontaneous
  Country: US (occurrence: None)
  Receive Date: 20131120
  Receipt Date: 20131120
  Transmission Date: 20140711
  Serious: Yes (Life-Threatening)
  Sender: FDA-Public Use
  Company Number: None

PATIENT
  Age: 7 Year
  Sex: Male
  Weight: 21.77 kg

DRUGS (1)
  1. OXYBUTYNIN [Suspect]
     Indication: HYPERTONIC BLADDER
     Route: 048
     Dates: start: 20131003, end: 20131102

REACTIONS (9)
  - Erythema [None]
  - Chest discomfort [None]
  - Dizziness [None]
  - Nausea [None]
  - Hypohidrosis [None]
  - Skin warm [None]
  - Pallor [None]
  - Body temperature increased [None]
  - Heat stroke [None]
